APPROVED DRUG PRODUCT: RIZATRIPTAN BENZOATE
Active Ingredient: RIZATRIPTAN BENZOATE
Strength: EQ 10MG BASE
Dosage Form/Route: TABLET;ORAL
Application: A201993 | Product #002 | TE Code: AB
Applicant: PHARMOBEDIENT CONSULTING LLC
Approved: Dec 31, 2012 | RLD: No | RS: No | Type: RX